FAERS Safety Report 16933305 (Version 1)
Quarter: 2019Q4

REPORT INFORMATION
  Report Type: Spontaneous
  Country: US (occurrence: US)
  Receive Date: 20191018
  Receipt Date: 20191018
  Transmission Date: 20200122
  Serious: No
  Sender: FDA-Public Use
  Company Number: US-BRISTOL-MYERS SQUIBB COMPANY-BMS-2019-099005

PATIENT
  Sex: Female
  Weight: 74.7 kg

DRUGS (2)
  1. ELIQUIS [Suspect]
     Active Substance: APIXABAN
     Indication: PRODUCT USED FOR UNKNOWN INDICATION
     Dosage: UNK
     Route: 065
  2. TYVASO [Suspect]
     Active Substance: TREPROSTINIL
     Indication: HYPERTENSION
     Dosage: 1 DOSAGE FORM, QID
     Dates: start: 20190924

REACTIONS (4)
  - Haemoptysis [Unknown]
  - Headache [Unknown]
  - Oxygen saturation decreased [Unknown]
  - Dyspnoea [Unknown]
